FAERS Safety Report 25410272 (Version 3)
Quarter: 2025Q3

REPORT INFORMATION
  Report Type: Spontaneous
  Country: JP (occurrence: JP)
  Receive Date: 20250608
  Receipt Date: 20250702
  Transmission Date: 20251021
  Serious: Yes (Hospitalization)
  Sender: MERCK SHARP & DOHME LLC
  Company Number: JP-009507513-2292332

PATIENT
  Sex: Female

DRUGS (2)
  1. KEYTRUDA [Suspect]
     Active Substance: PEMBROLIZUMAB
     Indication: Cervix carcinoma stage III
     Route: 041
     Dates: start: 202503
  2. CISPLATIN [Concomitant]
     Active Substance: CISPLATIN
     Route: 041
     Dates: start: 202503

REACTIONS (1)
  - Cystitis bacterial [Recovered/Resolved]

NARRATIVE: CASE EVENT DATE: 20250501
